FAERS Safety Report 18960314 (Version 2)
Quarter: 2021Q1

REPORT INFORMATION
  Report Type: Spontaneous
  Country: FR (occurrence: FR)
  Receive Date: 20210303
  Receipt Date: 20210308
  Transmission Date: 20210420
  Serious: Yes (Life-Threatening, Hospitalization)
  Sender: FDA-Public Use
  Company Number: FR-TEVA-2021-FR-1885426

PATIENT
  Age: 33 Year
  Sex: Female

DRUGS (10)
  1. LAMIVUDINE. [Concomitant]
     Active Substance: LAMIVUDINE
     Indication: PROPHYLAXIS AGAINST HIV INFECTION
     Dosage: 300 MILLIGRAM DAILY;
     Route: 065
  2. HEPARIN [Concomitant]
     Active Substance: HEPARIN SODIUM
     Indication: ANTICOAGULANT THERAPY
     Route: 040
  3. HEPARIN [Concomitant]
     Active Substance: HEPARIN SODIUM
     Indication: ANTICOAGULANT THERAPY
     Dosage: 50 IU/KG DAILY;
     Route: 040
  4. LOPINAVIR/RITONAVIR [Interacting]
     Active Substance: LOPINAVIR\RITONAVIR
     Indication: PROPHYLAXIS AGAINST HIV INFECTION
     Dosage: 2 DOSAGE FORMS DAILY;
     Route: 065
  5. ISOSORBIDE DINITRATE. [Suspect]
     Active Substance: ISOSORBIDE DINITRATE
     Indication: VASOSPASM
     Dosage: FIRST?LINE THERAPY
     Route: 041
  6. DIHYDROERGOTAMINE [Interacting]
     Active Substance: DIHYDROERGOTAMINE
     Indication: ORTHOSTATIC HYPOTENSION
     Dosage: 5 MILLIGRAM DAILY;
     Route: 065
  7. LITHIUM CARBONATE. [Concomitant]
     Active Substance: LITHIUM CARBONATE
     Indication: BIPOLAR DISORDER
     Dosage: 400 MILLIGRAM DAILY;
     Route: 065
  8. AMLODIPINE [Suspect]
     Active Substance: AMLODIPINE BESYLATE
     Indication: VASOSPASM
     Dosage: FIRST?LINE THERAPY
     Route: 048
  9. ZIDOVUDINE. [Concomitant]
     Active Substance: ZIDOVUDINE
     Indication: PROPHYLAXIS AGAINST HIV INFECTION
     Dosage: 600 MILLIGRAM DAILY;
     Route: 065
  10. QUETIAPINE FUMARATE. [Concomitant]
     Active Substance: QUETIAPINE FUMARATE
     Indication: BIPOLAR DISORDER
     Dosage: 50 MILLIGRAM DAILY;
     Route: 065

REACTIONS (10)
  - Vasospasm [Recovered/Resolved]
  - Compartment syndrome [Recovered/Resolved]
  - Neuralgia [Recovered/Resolved]
  - Ergot poisoning [Recovered/Resolved]
  - Drug ineffective [Unknown]
  - Drug interaction [Recovered/Resolved]
  - Paralysis [Recovered/Resolved]
  - Peripheral ischaemia [Recovered/Resolved]
  - Overdose [Recovered/Resolved]
  - Rhabdomyolysis [Recovered/Resolved]
